FAERS Safety Report 12588474 (Version 1)
Quarter: 2016Q3

REPORT INFORMATION
  Report Type: Spontaneous
  Country: US (occurrence: US)
  Receive Date: 20160725
  Receipt Date: 20160725
  Transmission Date: 20161109
  Serious: No
  Sender: FDA-Public Use
  Company Number: US-JNJFOC-20160700289

PATIENT
  Age: 52 Year
  Sex: Female

DRUGS (2)
  1. TYLENOL EXTRA STRENGTH [Suspect]
     Active Substance: ACETAMINOPHEN
     Indication: CELLULITIS
     Dosage: 1-2 CAPLETS, 1-2 X PER DAY.
     Route: 048
     Dates: start: 20160627
  2. TRADJENTA [Concomitant]
     Active Substance: LINAGLIPTIN
     Indication: DIABETES MELLITUS
     Dosage: 1X PER DAY, YEARS
     Route: 065

REACTIONS (2)
  - Underdose [Unknown]
  - Drug ineffective [Unknown]
